FAERS Safety Report 11895001 (Version 5)
Quarter: 2016Q2

REPORT INFORMATION
  Report Type: Spontaneous
  Country: US (occurrence: US)
  Receive Date: 20160107
  Receipt Date: 20160527
  Transmission Date: 20160815
  Serious: Yes (Life-Threatening, Hospitalization, Other)
  Sender: FDA-Public Use
  Company Number: US-BRISTOL-MYERS SQUIBB COMPANY-BMS-2015-093149

PATIENT
  Sex: Female

DRUGS (4)
  1. BOTOX [Suspect]
     Active Substance: ONABOTULINUMTOXINA
     Indication: STIFF PERSON SYNDROME
     Route: 065
  2. METHOTREXATE [Suspect]
     Active Substance: METHOTREXATE
     Indication: SJOGREN^S SYNDROME
     Route: 065
  3. ELIQUIS [Suspect]
     Active Substance: APIXABAN
     Indication: THROMBOSIS PROPHYLAXIS
     Route: 065
  4. ENBREL [Suspect]
     Active Substance: ETANERCEPT
     Indication: RHEUMATOID ARTHRITIS
     Dosage: 50 MG, QWK
     Route: 065
     Dates: start: 20150623, end: 2015

REACTIONS (22)
  - Oesophageal spasm [Unknown]
  - Pain [Unknown]
  - Feeling hot [Unknown]
  - Erythema [Unknown]
  - Pain in extremity [Unknown]
  - Fine motor skill dysfunction [Unknown]
  - Limb discomfort [Unknown]
  - Choking [Unknown]
  - Heart rate decreased [Unknown]
  - Rubber sensitivity [Unknown]
  - Peripheral swelling [Unknown]
  - Arthropathy [Unknown]
  - Influenza like illness [Unknown]
  - Thrombosis [Unknown]
  - Fall [Unknown]
  - Pulmonary embolism [Unknown]
  - Oedema peripheral [Unknown]
  - Speech disorder [Unknown]
  - Cataract [Unknown]
  - Liver disorder [Unknown]
  - Stiff person syndrome [Unknown]
  - Joint swelling [Unknown]

NARRATIVE: CASE EVENT DATE: 2015
